FAERS Safety Report 10159313 (Version 3)
Quarter: 2014Q2

REPORT INFORMATION
  Report Type: Spontaneous
  Country: US (occurrence: US)
  Receive Date: 20140508
  Receipt Date: 20140617
  Transmission Date: 20141212
  Serious: Yes (Other)
  Sender: FDA-Public Use
  Company Number: US-AMGEN INC.-USASP2014032740

PATIENT
  Age: 55 Year
  Sex: Female
  Weight: 81.63 kg

DRUGS (2)
  1. ENBREL [Suspect]
     Indication: RHEUMATOID ARTHRITIS
     Dosage: 25 MG, QWK
     Route: 058
     Dates: start: 20120426
  2. ENBREL [Suspect]
     Indication: SYSTEMIC LUPUS ERYTHEMATOSUS
     Dosage: UNK
     Route: 065

REACTIONS (13)
  - Pyrexia [Recovered/Resolved]
  - Mouth ulceration [Recovered/Resolved]
  - Cough [Recovered/Resolved]
  - Rhinorrhoea [Not Recovered/Not Resolved]
  - White blood cell count increased [Recovered/Resolved]
  - Asthma [Not Recovered/Not Resolved]
  - Bronchitis [Recovered/Resolved]
  - Seasonal allergy [Not Recovered/Not Resolved]
  - Malaise [Unknown]
  - Fatigue [Unknown]
  - Bursitis [Unknown]
  - Pain [Unknown]
  - Injection site bruising [Not Recovered/Not Resolved]
